FAERS Safety Report 7145403-X (Version None)
Quarter: 2010Q4

REPORT INFORMATION
  Report Type: 
  Country: None (occurrence: None)
  Receive Date: 20101208
  Receipt Date: 20101202
  Transmission Date: 20110411
  Serious: Yes (Hospitalization)
  Sender: FDA-Public Use
  Company Number: US-PFIZER INC-2010162985

PATIENT
  Sex: Male

DRUGS (2)
  1. TOVIAZ [Suspect]
     Indication: POLLAKIURIA
     Dosage: UNK
     Route: 048
  2. TAMSULOSIN HYDROCHLORIDE [Suspect]
     Indication: BENIGN PROSTATIC HYPERPLASIA
     Dosage: UNK
     Route: 048

REACTIONS (1)
  - URINARY RETENTION [None]
